FAERS Safety Report 8513343-7 (Version None)
Quarter: 2012Q3

REPORT INFORMATION
  Report Type: 
  Country: None (occurrence: None)
  Receive Date: 20120716
  Receipt Date: 20120706
  Transmission Date: 20120928
  Serious: Yes (Disabling)
  Sender: FDA-Public Use
  Company Number: GB-TEVA-347428ISR

PATIENT
  Age: 77 Year
  Sex: Male
  Weight: 120 kg

DRUGS (17)
  1. QUININE SULFATE [Concomitant]
     Dates: start: 20120323
  2. SENNA-MINT WAF [Concomitant]
     Dates: start: 20120319, end: 20120331
  3. CARBOCISTEINE [Concomitant]
     Dates: start: 20120323
  4. TAMSULOSIN HYDROCHLORIDE [Concomitant]
     Dates: start: 20120323
  5. AMOXICILLIN [Concomitant]
     Dates: start: 20120515, end: 20120520
  6. ROPINIROLE [Suspect]
     Indication: ILL-DEFINED DISORDER
     Dates: start: 20120627
  7. SULFADIAZINE [Concomitant]
     Dates: start: 20120402, end: 20120416
  8. FLUTICASONE PROPIONATE [Concomitant]
     Dates: start: 20120319, end: 20120418
  9. PANTOPRAZOLE [Concomitant]
     Dates: start: 20120323
  10. HYOSCINE HYDROBROMIDE [Concomitant]
     Dates: start: 20120329
  11. HYDROMOL CREAM [Concomitant]
     Dates: start: 20120319, end: 20120329
  12. RAMIPRIL [Concomitant]
     Dates: start: 20120323
  13. FUROSEMIDE [Concomitant]
     Dates: start: 20120423
  14. VITAMIN B SUBSTANCES [Concomitant]
     Dates: start: 20120305
  15. PREGABALIN [Concomitant]
     Dates: start: 20120323
  16. SOLIFENACIN SUCCINATE [Concomitant]
     Dates: start: 20120323
  17. IBUPROFEN [Concomitant]
     Dates: start: 20120618

REACTIONS (2)
  - MEMORY IMPAIRMENT [None]
  - TARDIVE DYSKINESIA [None]
